FAERS Safety Report 10310308 (Version 1)
Quarter: 2014Q3

REPORT INFORMATION
  Report Type: Spontaneous
  Country: PT (occurrence: PT)
  Receive Date: 20140717
  Receipt Date: 20140717
  Transmission Date: 20150326
  Serious: Yes (Hospitalization, Other)
  Sender: FDA-Public Use
  Company Number: PT-MYLANLABS-2014S1016127

PATIENT
  Age: 19 Year
  Sex: Female

DRUGS (5)
  1. CEFTRIAXONE. [Suspect]
     Active Substance: CEFTRIAXONE
     Dosage: 1G
     Route: 042
  2. EPINEPHRINE. [Suspect]
     Active Substance: EPINEPHRINE
     Indication: ANAPHYLACTIC REACTION
     Dosage: 1MG, ERRONEOUS
     Route: 042
  3. HYDROCORTISONE. [Concomitant]
     Active Substance: HYDROCORTISONE
     Indication: ANAPHYLACTIC REACTION
     Route: 065
  4. EPINEPHRINE. [Suspect]
     Active Substance: EPINEPHRINE
     Indication: ANAPHYLACTIC REACTION
     Dosage: 0.5 + 0.5MG
     Route: 030
  5. CLEMASTINE [Concomitant]
     Active Substance: CLEMASTINE
     Indication: ANAPHYLACTIC REACTION
     Route: 065

REACTIONS (6)
  - Cough [Unknown]
  - Anaphylactic reaction [Unknown]
  - Stress cardiomyopathy [Recovering/Resolving]
  - Haemoptysis [Unknown]
  - Drug administration error [Unknown]
  - Overdose [Unknown]
